FAERS Safety Report 20947478 (Version 3)
Quarter: 2023Q1

REPORT INFORMATION
  Report Type: Report from Study
  Country: US (occurrence: None)
  Receive Date: 20220610
  Receipt Date: 20230324
  Transmission Date: 20230418
  Serious: Yes (Other)
  Sender: FDA-Public Use
  Company Number: US-ROCHE-3111874

PATIENT
  Age: 49 Year
  Sex: Male
  Weight: 87.6 kg

DRUGS (38)
  1. OCRELIZUMAB [Suspect]
     Active Substance: OCRELIZUMAB
     Indication: Relapsing-remitting multiple sclerosis
     Dosage: OLE WEEK 0
     Route: 042
     Dates: start: 20141008, end: 20141008
  2. OCRELIZUMAB [Suspect]
     Active Substance: OCRELIZUMAB
     Dosage: OLE WEEK 2
     Route: 042
     Dates: start: 20141023, end: 20141023
  3. OCRELIZUMAB [Suspect]
     Active Substance: OCRELIZUMAB
     Dosage: OLE WEEK 24
     Route: 042
     Dates: start: 20150406, end: 20150406
  4. OCRELIZUMAB [Suspect]
     Active Substance: OCRELIZUMAB
     Dosage: OLE WEEK 48
     Route: 042
     Dates: start: 20150909, end: 20150909
  5. OCRELIZUMAB [Suspect]
     Active Substance: OCRELIZUMAB
     Dosage: OLE WEEK 72
     Route: 042
     Dates: start: 20160223, end: 20160223
  6. OCRELIZUMAB [Suspect]
     Active Substance: OCRELIZUMAB
     Dosage: OLE WEEK 96
     Route: 042
     Dates: start: 20160811, end: 20160811
  7. OCRELIZUMAB [Suspect]
     Active Substance: OCRELIZUMAB
     Dosage: OLE WEEK 120
     Route: 042
     Dates: start: 20170126, end: 20170126
  8. OCRELIZUMAB [Suspect]
     Active Substance: OCRELIZUMAB
     Dosage: OLE WEEK 144
     Route: 042
     Dates: start: 20170713, end: 20170713
  9. OCRELIZUMAB [Suspect]
     Active Substance: OCRELIZUMAB
     Dosage: OLE WEEK 168
     Route: 042
     Dates: start: 20171227, end: 20171227
  10. OCRELIZUMAB [Suspect]
     Active Substance: OCRELIZUMAB
     Dosage: OLE WEEK 192
     Route: 042
     Dates: start: 20180614, end: 20180614
  11. OCRELIZUMAB [Suspect]
     Active Substance: OCRELIZUMAB
     Dosage: OLE WEEK 216
     Route: 042
     Dates: start: 20181129, end: 20181129
  12. OCRELIZUMAB [Suspect]
     Active Substance: OCRELIZUMAB
     Dosage: OLE WEEK 240
     Route: 042
     Dates: start: 20190517, end: 20190517
  13. OCRELIZUMAB [Suspect]
     Active Substance: OCRELIZUMAB
     Dosage: OLE WEEK 264
     Route: 042
     Dates: start: 20191115, end: 20191115
  14. OCRELIZUMAB [Suspect]
     Active Substance: OCRELIZUMAB
     Dosage: OLE WEEK 288
     Route: 042
     Dates: start: 20200528, end: 20200528
  15. OCRELIZUMAB [Suspect]
     Active Substance: OCRELIZUMAB
     Dosage: OLE WEEK 312
     Route: 042
     Dates: start: 20201229, end: 20201229
  16. OCRELIZUMAB [Suspect]
     Active Substance: OCRELIZUMAB
     Dosage: OLE WEEK 312
     Route: 042
     Dates: start: 20201229, end: 20201229
  17. OCRELIZUMAB [Suspect]
     Active Substance: OCRELIZUMAB
     Dosage: OLE WEEK 360
     Route: 042
     Dates: start: 20210902, end: 20210902
  18. PLACEBO [Suspect]
     Active Substance: UNSPECIFIED INGREDIENT
     Indication: Relapsing-remitting multiple sclerosis
     Route: 042
     Dates: start: 20121106, end: 20121106
  19. PLACEBO [Suspect]
     Active Substance: UNSPECIFIED INGREDIENT
     Dosage: WEEK 2
     Route: 042
     Dates: start: 20121120, end: 20121120
  20. PLACEBO [Suspect]
     Active Substance: UNSPECIFIED INGREDIENT
     Dosage: WEEK 24
     Route: 042
     Dates: start: 20130426, end: 20130426
  21. PLACEBO [Suspect]
     Active Substance: UNSPECIFIED INGREDIENT
     Dosage: WEEK 48
     Route: 042
     Dates: start: 20131014, end: 20131014
  22. PLACEBO [Suspect]
     Active Substance: UNSPECIFIED INGREDIENT
     Dosage: WEEK 72
     Route: 042
     Dates: start: 20140324, end: 20140324
  23. INTERFERON BETA-1A [Suspect]
     Active Substance: INTERFERON BETA-1A
     Indication: Relapsing-remitting multiple sclerosis
     Route: 058
     Dates: start: 20121106, end: 20121106
  24. INTERFERON BETA-1A [Suspect]
     Active Substance: INTERFERON BETA-1A
     Route: 058
     Dates: start: 20140911, end: 20141006
  25. ACETAMINOPHEN [Concomitant]
     Active Substance: ACETAMINOPHEN
     Dosage: SUBSEQUENT DOSES :20/NOV/2012,26/APR/2013,14/OCT/2013,24/MAR/2014,08/OCT,2014,23/OCT/2014,06/APR/201
     Dates: start: 20121106
  26. DIPHENHYDRAMINE [Concomitant]
     Active Substance: DIPHENHYDRAMINE
     Dosage: SUBSEQUENT DOSES :20/NOV/2012,26/APR/2013,14/OCT/2013,24/MAR/2014,08/OCT,2014,23/OCT/2014,06/APR/201
     Dates: start: 20121106
  27. METHYLPREDNISOLONE [Concomitant]
     Active Substance: METHYLPREDNISOLONE
     Dosage: SUBSEQUENT DOSES :20/NOV/2012,26/APR/2013,14/OCT/2013,24/MAR/2014,08/OCT,2014,23/OCT/2014,06/APR/201
     Dates: start: 20121106, end: 20210902
  28. APPLE CIDER VINEGAR [Concomitant]
     Active Substance: APPLE CIDER VINEGAR
     Dates: start: 20201201
  29. DIETARY SUPPLEMENT [Concomitant]
     Active Substance: DIETARY SUPPLEMENT
     Dosage: 2 CAPSULE
     Dates: start: 20201201, end: 20210106
  30. TYLENOL PM [Concomitant]
     Active Substance: ACETAMINOPHEN\DIPHENHYDRAMINE
     Indication: Sleep disorder
     Dosage: 1 TABLET
     Dates: start: 20121110
  31. COPAXONE [Concomitant]
     Active Substance: GLATIRAMER ACETATE
     Indication: Multiple sclerosis
     Dates: start: 201209, end: 20121104
  32. AMOXICILLIN\CLAVULANIC ACID [Concomitant]
     Active Substance: AMOXICILLIN\CLAVULANIC ACID
     Indication: Tooth abscess
     Dosage: 1 TABLET
     Dates: start: 20220501, end: 20220507
  33. CHLORHEXIDINE [Concomitant]
     Active Substance: CHLORHEXIDINE
     Indication: Tooth abscess
     Dates: start: 20220501
  34. DIPHENHYDRAMINE\IBUPROFEN [Concomitant]
     Active Substance: DIPHENHYDRAMINE\IBUPROFEN
     Indication: Upper respiratory tract infection
     Dosage: 2 CAPSULES
     Dates: start: 20180511, end: 20180513
  35. FINASTERIDE [Concomitant]
     Active Substance: FINASTERIDE
     Indication: Urinary incontinence
     Dates: start: 20220501
  36. TAMSULOSIN [Concomitant]
     Active Substance: TAMSULOSIN
     Indication: Urinary incontinence
     Dates: start: 20220501
  37. TYLENOL [Concomitant]
     Active Substance: ACETAMINOPHEN
     Indication: Urinary tract infection
     Dates: start: 20220322
  38. CIPROFLOXACIN [Concomitant]
     Active Substance: CIPROFLOXACIN
     Indication: Urinary tract infection
     Dates: start: 20220322, end: 20220404

REACTIONS (1)
  - Bladder cancer [Not Recovered/Not Resolved]

NARRATIVE: CASE EVENT DATE: 20220523
